FAERS Safety Report 8601384-0 (Version None)
Quarter: 2012Q3

REPORT INFORMATION
  Report Type: 
  Country: None (occurrence: None)
  Receive Date: 20120817
  Receipt Date: 20120813
  Transmission Date: 20120928
  Serious: Yes (Disabling)
  Sender: FDA-Public Use
  Company Number: US-PFIZER INC-2012198460

PATIENT
  Age: 61 Year
  Sex: Female
  Weight: 47.166 kg

DRUGS (10)
  1. VITAMIN D [Concomitant]
     Indication: INTERVERTEBRAL DISC DEGENERATION
     Dosage: UNK
  2. NEURONTIN [Suspect]
     Indication: NEURALGIA
     Dosage: 100 MG, 1X/DAY
     Route: 048
     Dates: start: 20090101, end: 20090101
  3. CALCIUM [Concomitant]
     Indication: INTERVERTEBRAL DISC DEGENERATION
     Dosage: UNK
  4. LYRICA [Suspect]
     Dosage: 75 MG, 2X/DAY
     Route: 048
     Dates: start: 20090101
  5. ESTROGEL [Concomitant]
     Dosage: UNK
  6. LYRICA [Suspect]
     Indication: NEURALGIA
     Dosage: 50 MG, 2X/DAY
     Route: 048
     Dates: start: 20090901, end: 20090101
  7. NORVASC [Concomitant]
     Indication: HYPERTENSION
     Dosage: UNK
  8. ATENOLOL [Concomitant]
     Indication: HYPERTENSION
     Dosage: UNK
  9. MULTI-VITAMINS [Concomitant]
     Indication: INTERVERTEBRAL DISC DEGENERATION
     Dosage: UNK
  10. LATANOPROST [Concomitant]
     Dosage: UNK

REACTIONS (3)
  - INTERVERTEBRAL DISC DEGENERATION [None]
  - NERVE COMPRESSION [None]
  - INTERVERTEBRAL DISC COMPRESSION [None]
